FAERS Safety Report 7516632-8 (Version None)
Quarter: 2011Q2

REPORT INFORMATION
  Report Type: 
  Country: None (occurrence: None)
  Receive Date: 20110601
  Receipt Date: 20110517
  Transmission Date: 20111010
  Serious: No
  Sender: FDA-Public Use
  Company Number: US-B.I. PHARMACEUTICALS,INC./RIDGEFIELD-2011-BP-13370BP

PATIENT
  Sex: Female

DRUGS (4)
  1. DILAUDID [Concomitant]
     Route: 048
  2. SYNTHROID [Concomitant]
     Route: 048
  3. ZANTAC [Suspect]
     Indication: DYSPEPSIA
     Dosage: 300 MG
     Route: 048
     Dates: start: 20110509, end: 20110516
  4. RESTORIL [Concomitant]
     Route: 048

REACTIONS (1)
  - DYSPEPSIA [None]
